FAERS Safety Report 5294561-0 (Version None)
Quarter: 2007Q2

REPORT INFORMATION
  Report Type: 
  Country: None (occurrence: None)
  Receive Date: 20070409
  Receipt Date: 20070409
  Transmission Date: 20071010
  Serious: Yes (Life-Threatening, Hospitalization, Disabling, Congenital Anomaly, Other)
  Sender: FDA-Public Use
  Company Number: None

PATIENT
  Age: 1 Day
  Sex: Male
  Weight: 2.7851 kg

DRUGS (2)
  1. FLUOXETINE HCL [Suspect]
     Indication: ANXIETY
     Dosage: 20 MG ONCE A DAY PO
     Route: 048
     Dates: start: 20040827, end: 20070406
  2. FLUOXETINE HCL [Suspect]
     Indication: PANIC DISORDER
     Dosage: 20 MG ONCE A DAY PO
     Route: 048
     Dates: start: 20040827, end: 20070406

REACTIONS (3)
  - DRUG EXPOSURE DURING PREGNANCY [None]
  - HYPOPLASTIC LEFT HEART SYNDROME [None]
  - TRANSPOSITION OF THE GREAT VESSELS [None]
